FAERS Safety Report 5996285-0 (Version None)
Quarter: 2008Q4

REPORT INFORMATION
  Report Type: 
  Country: None (occurrence: None)
  Receive Date: 20081212
  Receipt Date: 20081022
  Transmission Date: 20090506
  Serious: Yes (Other)
  Sender: FDA-Public Use
  Company Number: US-ABBOTT-08P-163-0480718-00

PATIENT
  Sex: Male
  Weight: 90.8 kg

DRUGS (3)
  1. HUMIRA [Suspect]
     Indication: RHEUMATOID ARTHRITIS
     Route: 058
     Dates: start: 20060101
  2. METHOTREXATE [Concomitant]
     Indication: RHEUMATOID ARTHRITIS
     Route: 048
  3. MELOXICAM [Concomitant]
     Indication: RHEUMATOID ARTHRITIS

REACTIONS (8)
  - FATIGUE [None]
  - GENERALISED OEDEMA [None]
  - HEADACHE [None]
  - INJECTION SITE SWELLING [None]
  - MALAISE [None]
  - PYREXIA [None]
  - SQUAMOUS CELL CARCINOMA [None]
  - THIRST [None]
